FAERS Safety Report 8831043 (Version 5)
Quarter: 2014Q2

REPORT INFORMATION
  Report Type: Spontaneous
  Country: DE (occurrence: DE)
  Receive Date: 20121009
  Receipt Date: 20131018
  Transmission Date: 20141212
  Serious: Yes (Other)
  Sender: FDA-Public Use
  Company Number: DE-PFIZER INC-2012243467

PATIENT
  Age: 42 Year
  Sex: Female
  Weight: 56 kg

DRUGS (3)
  1. DEPO-CLINOVIR [Suspect]
     Indication: CONTRACEPTION
     Dosage: ONCE A QUARTER
     Route: 030
     Dates: start: 20101020
  2. DEPO-CLINOVIR [Suspect]
     Indication: MENORRHAGIA
  3. CORTISONE [Concomitant]
     Dosage: UNK
     Dates: start: 201103, end: 201103

REACTIONS (5)
  - Injection site atrophy [Recovered/Resolved with Sequelae]
  - Fat necrosis [Unknown]
  - Uterine disorder [Unknown]
  - Menorrhagia [Not Recovered/Not Resolved]
  - Nervous system disorder [Unknown]
